FAERS Safety Report 5168541-X (Version None)
Quarter: 2006Q4

REPORT INFORMATION
  Report Type: 
  Country: None (occurrence: None)
  Receive Date: 20061208
  Receipt Date: 20061130
  Transmission Date: 20070319
  Serious: Yes (Other)
  Sender: FDA-Public Use
  Company Number: SK-ABBOTT-06P-260-0352069-00

PATIENT
  Sex: Male
  Weight: 86 kg

DRUGS (7)
  1. GOPTEN [Suspect]
     Indication: HYPERTENSION
     Route: 048
     Dates: start: 19971101, end: 20061101
  2. GOPTEN [Suspect]
     Indication: MYOCARDIAL ISCHAEMIA
  3. GOPTEN [Suspect]
     Indication: ANGINA UNSTABLE
  4. BISOPROLOL FUMARATE [Concomitant]
     Indication: HYPERTENSION
     Route: 048
  5. TRIMETAZIDINE PREDUCTAL [Concomitant]
     Indication: HYPERTENSION
     Route: 048
  6. MONOMACK DEPOT [Concomitant]
     Indication: DRUG USE FOR UNKNOWN INDICATION
     Route: 048
  7. ACETYLSALICYLIC ACID SRT [Concomitant]
     Indication: DRUG USE FOR UNKNOWN INDICATION
     Route: 048

REACTIONS (3)
  - HAEMORRHAGE [None]
  - INJURY [None]
  - THROMBOCYTOPENIA [None]
